FAERS Safety Report 7088536-9 (Version None)
Quarter: 2010Q4

REPORT INFORMATION
  Report Type: 
  Country: None (occurrence: None)
  Receive Date: 20101108
  Receipt Date: 20101103
  Transmission Date: 20110411
  Serious: Yes (Other)
  Sender: FDA-Public Use
  Company Number: GB-PFIZER INC-2010140590

PATIENT
  Age: 45 Year
  Sex: Female
  Weight: 79 kg

DRUGS (1)
  1. CHAMPIX [Suspect]
     Dosage: 1 MG DAILY
     Route: 048
     Dates: start: 20100901, end: 20101013

REACTIONS (11)
  - ACTIVITIES OF DAILY LIVING IMPAIRED [None]
  - GINGIVAL BLEEDING [None]
  - JOINT STIFFNESS [None]
  - LIBIDO DISORDER [None]
  - MENTAL IMPAIRMENT [None]
  - MOOD SWINGS [None]
  - MUSCLE SPASMS [None]
  - PANIC ATTACK [None]
  - RESTLESSNESS [None]
  - VAGINAL DISCHARGE [None]
  - VISUAL IMPAIRMENT [None]
